FAERS Safety Report 20797151 (Version 1)
Quarter: 2022Q2

REPORT INFORMATION
  Report Type: Report from Study
  Country: US (occurrence: US)
  Receive Date: 20220506
  Receipt Date: 20220506
  Transmission Date: 20220720
  Serious: Yes (Hospitalization)
  Sender: FDA-Public Use
  Company Number: US-PFIZER INC-202200625186

PATIENT
  Age: 72 Year
  Sex: Female
  Weight: 192.8 kg

DRUGS (5)
  1. INOTUZUMAB OZOGAMICIN [Suspect]
     Active Substance: INOTUZUMAB OZOGAMICIN
     Indication: Acute lymphocytic leukaemia
     Dosage: 1.46 MG, 3X IN COURSE I AND COURSE II
     Route: 042
     Dates: start: 20220201, end: 20220316
  2. METHOTREXATE SODIUM [Suspect]
     Active Substance: METHOTREXATE SODIUM
     Indication: Acute lymphocytic leukaemia
     Dosage: 15 MG, PER PROTOCOL
     Route: 037
     Dates: start: 20220124, end: 20220328
  3. DASATINIB [Suspect]
     Active Substance: DASATINIB
     Indication: Acute lymphocytic leukaemia
     Dosage: 140 MG, QD
     Route: 048
     Dates: start: 20220125, end: 20220405
  4. NORVASC [Concomitant]
     Active Substance: AMLODIPINE BESYLATE
     Indication: Hypertension
     Dosage: UNK
     Route: 048
     Dates: start: 20220204
  5. LOSARTAN [Concomitant]
     Active Substance: LOSARTAN
     Indication: Hyperlipidaemia
     Dosage: UNK
     Route: 048
     Dates: start: 20220204

REACTIONS (2)
  - Acute kidney injury [Recovered/Resolved]
  - Mucosal inflammation [Recovered/Resolved]

NARRATIVE: CASE EVENT DATE: 20220405
